FAERS Safety Report 16707452 (Version 6)
Quarter: 2021Q1

REPORT INFORMATION
  Report Type: Spontaneous
  Country: US (occurrence: US)
  Receive Date: 20190815
  Receipt Date: 20210218
  Transmission Date: 20210419
  Serious: Yes (Other)
  Sender: FDA-Public Use
  Company Number: US-PFIZER INC-2018289602

PATIENT
  Age: 67 Year
  Sex: Female
  Weight: 90 kg

DRUGS (12)
  1. SYNTHROID [Concomitant]
     Active Substance: LEVOTHYROXINE SODIUM
     Indication: THYROID DISORDER
     Dosage: 25 UG, 1X/DAY
     Route: 048
     Dates: start: 1969
  2. LYRICA [Suspect]
     Active Substance: PREGABALIN
     Indication: FIBROMYALGIA
     Dosage: 75 MG, 3X/DAY
     Dates: start: 2007
  3. LYRICA [Suspect]
     Active Substance: PREGABALIN
     Dosage: 75 MG, TWICE A DAY (MORNING AND EVENING WITH SUPPER)
     Route: 048
     Dates: end: 20190806
  4. BABY ASPIRIN [Concomitant]
     Active Substance: ASPIRIN
     Indication: CAROTID ARTERY DISEASE
     Dosage: 81 MG, 1X/DAY
     Route: 048
     Dates: start: 2017
  5. SIMVASTATIN. [Concomitant]
     Active Substance: SIMVASTATIN
     Indication: BLOOD CHOLESTEROL INCREASED
     Dosage: 40 MG, 1X/DAY (ONCE A DAY AT NIGHT)
     Route: 048
     Dates: start: 2004
  6. LISINOPRIL. [Concomitant]
     Active Substance: LISINOPRIL
     Indication: BLOOD PRESSURE INCREASED
     Dosage: 20 MG, 1X/DAY
     Route: 048
  7. ENBREL [Concomitant]
     Active Substance: ETANERCEPT
     Indication: RHEUMATOID ARTHRITIS
     Dosage: 25 MG, (25 MG, EVERY 3 DAYS)
     Route: 058
     Dates: start: 200009
  8. METOPROLOL. [Concomitant]
     Active Substance: METOPROLOL
     Indication: HYPERTENSION
     Dosage: 50 MG, 1X/DAY
     Route: 048
  9. PRENATAL VITAMINS [ASCORBIC ACID;BETACAROTENE;CALCIUM SULFATE;COLECALC [Concomitant]
     Active Substance: MINERALS\VITAMINS
     Indication: SUPPLEMENTATION THERAPY
     Dosage: UNK UNK, 1X/DAY
     Dates: start: 1999
  10. MELOXICAM. [Concomitant]
     Active Substance: MELOXICAM
     Indication: RHEUMATOID ARTHRITIS
     Dosage: 15 MG, 1X/DAY
     Route: 048
     Dates: start: 2018
  11. HYDROCODONE [Concomitant]
     Active Substance: HYDROCODONE
     Indication: PAIN
     Dosage: UNK, 4X/DAY (STRENGTH: 10/325 MG)
     Route: 048
     Dates: start: 200006
  12. LEFLUNOMIDE. [Concomitant]
     Active Substance: LEFLUNOMIDE
     Indication: RHEUMATOID ARTHRITIS
     Dosage: 20 MG, 1X/DAY
     Route: 048

REACTIONS (18)
  - Gait disturbance [Unknown]
  - Influenza like illness [Unknown]
  - Chronic obstructive pulmonary disease [Unknown]
  - Somnolence [Unknown]
  - Sensitivity to weather change [Unknown]
  - Seasonal allergy [Unknown]
  - Rheumatoid arthritis [Unknown]
  - Fatigue [Unknown]
  - Drug ineffective [Unknown]
  - Myalgia [Unknown]
  - Pain [Unknown]
  - Feeling drunk [Unknown]
  - Body height decreased [Unknown]
  - Viral infection [Recovered/Resolved]
  - Feeling abnormal [Unknown]
  - Expired product administered [Unknown]
  - Withdrawal syndrome [Unknown]
  - Dyspnoea [Unknown]

NARRATIVE: CASE EVENT DATE: 20190809
